FAERS Safety Report 4280790-1 (Version None)
Quarter: 2004Q1

REPORT INFORMATION
  Report Type: 
  Country: None (occurrence: None)
  Receive Date: 20040128
  Receipt Date: 20040128
  Transmission Date: 20041129
  Serious: No
  Sender: FDA-Public Use
  Company Number: None

PATIENT
  Age: 24 Year
  Sex: Female
  Weight: 88.4 kg

DRUGS (1)
  1. FENTANYL [Suspect]
     Indication: HEADACHE
     Dosage: 50 MCG 2 DOSES INTRAVENOUS
     Route: 042
     Dates: start: 20040122, end: 20040122

REACTIONS (2)
  - BLOOD PRESSURE DECREASED [None]
  - RASH [None]
